FAERS Safety Report 6234840-3 (Version None)
Quarter: 2009Q2

REPORT INFORMATION
  Report Type: 
  Country: None (occurrence: None)
  Receive Date: 20090618
  Receipt Date: 20090511
  Transmission Date: 20091009
  Serious: Yes (Hospitalization)
  Sender: FDA-Public Use
  Company Number: US-MERCK-0906USA02683

PATIENT
  Age: 88 Year
  Sex: Male

DRUGS (2)
  1. THALOMID [Suspect]
     Indication: MULTIPLE MYELOMA
     Route: 048
     Dates: start: 20090407, end: 20090429
  2. DECADRON [Suspect]
     Route: 048
     Dates: end: 20090429

REACTIONS (1)
  - WHITE BLOOD CELL COUNT DECREASED [None]
